FAERS Safety Report 8170278-X (Version None)
Quarter: 2012Q1

REPORT INFORMATION
  Report Type: 
  Country: None (occurrence: None)
  Receive Date: 20120104
  Receipt Date: 20111024
  Transmission Date: 20120608
  Serious: No
  Sender: FDA-Public Use
  Company Number: 2011HGS-002684

PATIENT
  Age: 31 Year
  Sex: Female
  Weight: 76.2043 kg

DRUGS (12)
  1. BENLYSTA [Suspect]
     Indication: SYSTEMIC LUPUS ERYTHEMATOSUS
     Dosage: 1 IN 14 D, INTRAVENOUS DRIP
     Route: 041
     Dates: start: 20111004
  2. PLAQUENIL [Suspect]
  3. AMBIEN [Concomitant]
  4. LORTAB (VICODIN) (PARACETAMOL, HYDROCODONE BITARTRATE) [Concomitant]
  5. NEURONTIN [Concomitant]
  6. ELMIRON (PENTOSAN POLYSULFATE SODIUM) (PENTOSAN POLYSULFATE SODIUM) [Concomitant]
  7. DEXILANT (PROTON PUMP INHIBITORS) (NULL) [Concomitant]
  8. ELAVIL (AMITRIPTYLOINE HYDROCHLORIDE) (AMITRIPTYLINE HYDROCHLORIDE) [Concomitant]
  9. ZANAFLEX (TIZANIDINE HYDROCHLORIDE) (TIZANIDINE HYDROCHLORIDE) [Concomitant]
  10. IMURAN (AZATHIOPRINE) (AZATIHOPRINE) [Concomitant]
  11. SEPTRA DS (BACTRIM) (SULFAMETHOXAZOLE, TRIMETHOPRIM) [Concomitant]
  12. MEDROL (MEHYLPREDNISOLONE) (METHYLPREDNISOLONE) [Concomitant]

REACTIONS (3)
  - ANGIOEDEMA [None]
  - WEIGHT INCREASED [None]
  - PRURITUS [None]
